FAERS Safety Report 13658957 (Version 2)
Quarter: 2017Q3

REPORT INFORMATION
  Report Type: Report from Study
  Country: US (occurrence: US)
  Receive Date: 20170616
  Receipt Date: 20170724
  Transmission Date: 20171127
  Serious: No
  Sender: FDA-Public Use
  Company Number: US-AMGEN-USASL2017088597

PATIENT
  Age: 58 Year
  Sex: Male
  Weight: 137.87 kg

DRUGS (2)
  1. ENBREL [Suspect]
     Active Substance: ETANERCEPT
     Indication: PSORIATIC ARTHROPATHY
     Dosage: 1 ML , QWK
     Route: 058
     Dates: start: 20170519
  2. ENBREL [Suspect]
     Active Substance: ETANERCEPT
     Dosage: UNK, QWK
     Route: 065
     Dates: start: 20170521

REACTIONS (3)
  - Injection site erythema [Recovered/Resolved]
  - Therapeutic response delayed [Unknown]
  - Injection site warmth [Recovered/Resolved]

NARRATIVE: CASE EVENT DATE: 20170519
